FAERS Safety Report 24939150 (Version 1)
Quarter: 2025Q1

REPORT INFORMATION
  Report Type: Spontaneous
  Country: MT (occurrence: MT)
  Receive Date: 20250206
  Receipt Date: 20250206
  Transmission Date: 20250408
  Serious: Yes (Other)
  Sender: PHARMACEUTICAL ASSOC
  Company Number: MT-PAIPHARMA-2025-MT-000001

PATIENT
  Age: 59 Year
  Sex: Female

DRUGS (2)
  1. LEVETIRACETAM [Suspect]
     Active Substance: LEVETIRACETAM
     Indication: Seizure
  2. AMANTADINE [Suspect]
     Active Substance: AMANTADINE
     Indication: Multiple sclerosis

REACTIONS (1)
  - Corneal oedema [Unknown]
